FAERS Safety Report 4940315-1 (Version None)
Quarter: 2006Q1

REPORT INFORMATION
  Report Type: 
  Country: None (occurrence: None)
  Receive Date: 20060310
  Receipt Date: 20060308
  Transmission Date: 20060701
  Serious: Yes (Hospitalization)
  Sender: FDA-Public Use
  Company Number: CA-MERCK-0603CAN00048

PATIENT
  Age: 80 Year
  Sex: Female

DRUGS (2)
  1. FOSAMAX [Suspect]
     Route: 048
     Dates: start: 20050301
  2. OMEPRAZOLE MAGNESIUM [Concomitant]
     Route: 065

REACTIONS (3)
  - DYSPEPSIA [None]
  - NAUSEA [None]
  - TOOTH DISORDER [None]
